FAERS Safety Report 18370013 (Version 2)
Quarter: 2020Q4

REPORT INFORMATION
  Report Type: Spontaneous
  Country: US (occurrence: US)
  Receive Date: 20201012
  Receipt Date: 20201124
  Transmission Date: 20210114
  Serious: No
  Sender: FDA-Public Use
  Company Number: US-ASTRAZENECA-2020SF08665

PATIENT
  Age: 18900 Day
  Sex: Female
  Weight: 101 kg

DRUGS (2)
  1. VICTOZA [Suspect]
     Active Substance: LIRAGLUTIDE
     Indication: TYPE 2 DIABETES MELLITUS
     Route: 065
  2. BYDUREON BCISE [Suspect]
     Active Substance: EXENATIDE
     Indication: TYPE 2 DIABETES MELLITUS
     Route: 058
     Dates: start: 201911

REACTIONS (7)
  - Headache [Recovered/Resolved]
  - Device malfunction [Unknown]
  - Arthralgia [Recovered/Resolved]
  - Vomiting [Recovered/Resolved]
  - Injection site nodule [Recovering/Resolving]
  - Injection site pain [Unknown]
  - Nausea [Recovered/Resolved]

NARRATIVE: CASE EVENT DATE: 20140519
